FAERS Safety Report 21769168 (Version 2)
Quarter: 2023Q4

REPORT INFORMATION
  Report Type: Spontaneous
  Country: BR (occurrence: BR)
  Receive Date: 20221222
  Receipt Date: 20231013
  Transmission Date: 20240110
  Serious: Yes (Other)
  Sender: FDA-Public Use
  Company Number: BR-TORRENT-00005880

PATIENT
  Age: 30 Year
  Sex: Female
  Weight: 47 kg

DRUGS (1)
  1. ESCITALOPRAM OXALATE [Suspect]
     Active Substance: ESCITALOPRAM OXALATE
     Indication: Obsessive-compulsive disorder
     Dosage: HALF TABLET DAILY
     Route: 048
     Dates: start: 20221205, end: 20221206

REACTIONS (8)
  - Vomiting [Recovered/Resolved]
  - Burning sensation [Not Recovered/Not Resolved]
  - Arthralgia [Recovered/Resolved]
  - Insomnia [Not Recovered/Not Resolved]
  - Palpitations [Recovered/Resolved]
  - Angina pectoris [Recovered/Resolved]
  - Chest discomfort [Recovered/Resolved]
  - Psychomotor hyperactivity [Not Recovered/Not Resolved]

NARRATIVE: CASE EVENT DATE: 20221205
